FAERS Safety Report 14369049 (Version 1)
Quarter: 2018Q1

REPORT INFORMATION
  Report Type: Spontaneous
  Country: CN (occurrence: CN)
  Receive Date: 20180109
  Receipt Date: 20180109
  Transmission Date: 20180509
  Serious: Yes (Hospitalization)
  Sender: FDA-Public Use
  Company Number: CN-B.I. PHARMACEUTICALS,INC./RIDGEFIELD-2018-BI-000459

PATIENT
  Age: 83 Year
  Sex: Female
  Weight: 60 kg

DRUGS (6)
  1. PRADAXA [Suspect]
     Active Substance: DABIGATRAN ETEXILATE MESYLATE
     Indication: ATRIAL FIBRILLATION
     Route: 048
     Dates: start: 20170828, end: 20170901
  2. HYDROTALCITE [Concomitant]
     Active Substance: HYDROTALCITE
     Indication: VOMITING
  3. HYDROTALCITE [Concomitant]
     Active Substance: HYDROTALCITE
     Indication: NAUSEA
     Route: 048
     Dates: start: 20170823, end: 20170906
  4. BIFIDOBACTERIUM AND LACTOBACILLUS [Concomitant]
     Indication: NAUSEA
     Route: 065
     Dates: start: 20170826, end: 20170906
  5. PRADAXA [Suspect]
     Active Substance: DABIGATRAN ETEXILATE MESYLATE
     Indication: ATRIAL FLUTTER
  6. BIFIDOBACTERIUM AND LACTOBACILLUS [Concomitant]
     Indication: VOMITING

REACTIONS (2)
  - Coagulation time prolonged [Recovered/Resolved]
  - Upper gastrointestinal haemorrhage [Recovered/Resolved]

NARRATIVE: CASE EVENT DATE: 20170828
